FAERS Safety Report 13025870 (Version 1)
Quarter: 2016Q4

REPORT INFORMATION
  Report Type: Spontaneous
  Country: RO (occurrence: RO)
  Receive Date: 20161214
  Receipt Date: 20161214
  Transmission Date: 20170207
  Serious: Yes (Disabling)
  Sender: FDA-Public Use
  Company Number: RO-ASTELLAS-2016US048438

PATIENT
  Age: 47 Year
  Sex: Male

DRUGS (1)
  1. TARCEVA [Suspect]
     Active Substance: ERLOTINIB HYDROCHLORIDE
     Indication: LUNG NEOPLASM MALIGNANT
     Route: 065
     Dates: start: 20130801

REACTIONS (4)
  - Visual acuity reduced [Recovering/Resolving]
  - Eye pain [Recovering/Resolving]
  - Xerophthalmia [Recovering/Resolving]
  - Rash [Recovered/Resolved]

NARRATIVE: CASE EVENT DATE: 2014
